FAERS Safety Report 25944578 (Version 4)
Quarter: 2025Q4

REPORT INFORMATION
  Report Type: Spontaneous
  Country: US (occurrence: US)
  Receive Date: 20251021
  Receipt Date: 20251107
  Transmission Date: 20260117
  Serious: No
  Sender: PFIZER
  Company Number: US-PFIZER INC-202500204683

PATIENT
  Age: 68 Year
  Sex: Female

DRUGS (7)
  1. NORPACE CR [Suspect]
     Active Substance: DISOPYRAMIDE PHOSPHATE
     Indication: Parathyroidectomy
     Dosage: 150 MG, 2X/DAY
  2. DISOPYRAMIDE [Suspect]
     Active Substance: DISOPYRAMIDE
     Dosage: 100 MG, 2X/DAY
  3. ELIQUIS [Concomitant]
     Active Substance: APIXABAN
     Dosage: 5 MG, 2X/DAY
  4. TORSEMIDE [Concomitant]
     Active Substance: TORSEMIDE
     Dosage: 30 MG, 2X/DAY
  5. SPIRONOLACTONE [Concomitant]
     Active Substance: SPIRONOLACTONE
     Dosage: 25 MG, 2X/DAY
  6. METOPROLOL [Concomitant]
     Active Substance: METOPROLOL
     Dosage: 20 MG, 1X/DAY
  7. ALLOPURINOL [Concomitant]
     Active Substance: ALLOPURINOL
     Dosage: 200 MG, 1X/DAY

REACTIONS (5)
  - Dizziness [Unknown]
  - Dysgeusia [Unknown]
  - Nausea [Unknown]
  - Intentional product misuse [Unknown]
  - Off label use [Unknown]
